FAERS Safety Report 11802936 (Version 1)
Quarter: 2015Q4

REPORT INFORMATION
  Report Type: Spontaneous
  Country: GB (occurrence: GB)
  Receive Date: 20151204
  Receipt Date: 20151204
  Transmission Date: 20160305
  Serious: Yes (Other)
  Sender: FDA-Public Use
  Company Number: GB-TEVA-612410ACC

PATIENT
  Age: 70 Year
  Sex: Male
  Weight: 95.5 kg

DRUGS (12)
  1. FLUCONAZOLE. [Suspect]
     Active Substance: FLUCONAZOLE
     Indication: OESOPHAGEAL CANDIDIASIS
     Dosage: 50 MILLIGRAM DAILY;
     Route: 048
     Dates: start: 20151102, end: 20151106
  2. CYCLIZINE [Concomitant]
     Active Substance: CYCLIZINE
  3. PARACETAMOL [Concomitant]
     Active Substance: ACETAMINOPHEN
  4. OMEPRAZOLE. [Concomitant]
     Active Substance: OMEPRAZOLE
  5. VITAMIN B COMPLEX STRONG [Concomitant]
  6. LAXIDO [Concomitant]
     Active Substance: POLYETHYLENE GLYCOL 3350\POTASSIUM CHLORIDE\SODIUM BICARBONATE\SODIUM CHLORIDE
  7. OLANZAPINE. [Concomitant]
     Active Substance: OLANZAPINE
  8. METOCLOPRAMIDE. [Concomitant]
     Active Substance: METOCLOPRAMIDE
  9. ZOLEDRONATE [Concomitant]
     Active Substance: ZOLEDRONIC ACID
  10. DEXAMETHASONE. [Concomitant]
     Active Substance: DEXAMETHASONE
  11. SALBUTAMOL [Concomitant]
     Active Substance: ALBUTEROL
  12. THIAMINE. [Concomitant]
     Active Substance: THIAMINE

REACTIONS (1)
  - Hyperkalaemia [Recovering/Resolving]

NARRATIVE: CASE EVENT DATE: 20151103
